FAERS Safety Report 5072040-3 (Version None)
Quarter: 2006Q3

REPORT INFORMATION
  Report Type: 
  Country: None (occurrence: None)
  Receive Date: 20060807
  Receipt Date: 20060802
  Transmission Date: 20061208
  Serious: Yes (Hospitalization, Other)
  Sender: FDA-Public Use
  Company Number: DE-AVENTIS-200612280DE

PATIENT
  Age: 60 Year
  Sex: Female
  Weight: 50 kg

DRUGS (5)
  1. DOCETAXEL [Suspect]
     Dosage: FREQUENCY: CYCLICALLY
     Route: 042
     Dates: start: 20060725, end: 20060725
  2. GEMCITABINE [Suspect]
     Dosage: FREQUENCY: CYCLICALLY
     Route: 042
     Dates: start: 20060725, end: 20060725
  3. NAVOBAN [Concomitant]
     Route: 042
     Dates: start: 20060725, end: 20060725
  4. DEXAMETHASONE [Concomitant]
     Route: 042
     Dates: start: 20060725, end: 20060725
  5. DEXAMETHASONE [Concomitant]
     Route: 048
     Dates: start: 20060725, end: 20060727

REACTIONS (1)
  - FEBRILE NEUTROPENIA [None]
